FAERS Safety Report 7894552-7 (Version None)
Quarter: 2011Q4

REPORT INFORMATION
  Report Type: 
  Country: None (occurrence: None)
  Receive Date: 20111106
  Receipt Date: 20110816
  Transmission Date: 20120403
  Serious: No
  Sender: FDA-Public Use
  Company Number: US-AMGEN-USASP2011041822

PATIENT
  Age: 47 Year
  Sex: Female
  Weight: 63.492 kg

DRUGS (12)
  1. LOVASTATIN [Concomitant]
  2. TEMAZEPAM [Concomitant]
  3. MELATONIN [Concomitant]
  4. ENBREL [Suspect]
     Indication: PRODUCT USED FOR UNKNOWN INDICATION
     Dosage: 50 MG, QWK
  5. PREDNISONE [Concomitant]
  6. FOLIC ACID [Concomitant]
  7. MEDROXYPROGES LENS [Concomitant]
  8. PAMPRIN TAB [Concomitant]
  9. TRAMADOL HCL [Concomitant]
  10. NAPROXEN [Concomitant]
  11. REQUIP [Concomitant]
  12. VITAMIN D [Concomitant]

REACTIONS (1)
  - RASH [None]
